FAERS Safety Report 5799440-8 (Version None)
Quarter: 2008Q3

REPORT INFORMATION
  Report Type: 
  Country: None (occurrence: None)
  Receive Date: 20080703
  Receipt Date: 20080630
  Transmission Date: 20090109
  Serious: Yes (Hospitalization, Other)
  Sender: FDA-Public Use
  Company Number: FR-BRISTOL-MYERS SQUIBB COMPANY-14247175

PATIENT
  Age: 88 Year
  Sex: Male

DRUGS (11)
  1. COUMADIN [Suspect]
     Dosage: STARTED UNSPECIFIED DATE BEFORE JAN08 DRUG INTERRUPTED ON 10-APR-2008 AND RECHALLENGED AT 3MG/DAY
  2. ASPIRIN [Suspect]
     Dosage: STARTED UNSPECIFIED DATE BEFORE JAN-2008
     Dates: end: 20080410
  3. PRAXILENE [Concomitant]
     Dosage: STARTED UNSPECIFIED DATE BEFORE JAN08
     Dates: end: 20080410
  4. LASIX [Concomitant]
     Dosage: STARTED UNSPECIFIED DATE BEFORE JAN08
  5. STABLON [Concomitant]
     Dosage: STARTED UNSPECIFIED DATE BEFORE JAN08
  6. IKOREL [Concomitant]
     Dosage: STARTED UNSPECIFIED DATE BEFORE JAN08
  7. RAMIPRIL [Concomitant]
     Dosage: STARTED UNSPECIFIED DATE BEFORE JAN08
  8. XANAX [Concomitant]
     Dosage: STARTED UNSPECIFIED DATE BEFORE JAN08
  9. ARICEPT [Concomitant]
     Dosage: STARTED UNSPECIFIED DATE BEFORE JAN08
  10. DISCOTRINE [Concomitant]
     Dosage: 1 DOSAGE FORM = 15 MG PATCH
  11. CARVEDILOL [Concomitant]
     Dosage: KREDEX 6.25 MG (0.5/D) STARTED UNSPECIFIED DATE BEFORE JAN-2008

REACTIONS (4)
  - ANAEMIA [None]
  - DUODENITIS [None]
  - INTERNATIONAL NORMALISED RATIO INCREASED [None]
  - MELAENA [None]
